FAERS Safety Report 23788254 (Version 4)
Quarter: 2025Q4

REPORT INFORMATION
  Report Type: Report from Study
  Country: US (occurrence: US)
  Receive Date: 20240426
  Receipt Date: 20251217
  Transmission Date: 20260118
  Serious: Yes (Other)
  Sender: PFIZER
  Company Number: US-PFIZER INC-PV202400054257

PATIENT
  Age: 72 Year
  Sex: Female

DRUGS (1)
  1. IBRANCE [Suspect]
     Active Substance: PALBOCICLIB
     Dosage: 100 MG, CYCLIC, TAKE ONCE DAILY 1-21, 7 DAYS OFF/1 TABLET DAILY FOR 21 DAYS ON AND 7 DAYS OFF

REACTIONS (3)
  - Oral surgery [Unknown]
  - Fluid retention [Unknown]
  - Product dose omission in error [Unknown]
